FAERS Safety Report 8886838 (Version 2)
Quarter: 2013Q1

REPORT INFORMATION
  Report Type: Spontaneous
  Country: FR (occurrence: FR)
  Receive Date: 20121105
  Receipt Date: 20130301
  Transmission Date: 20140127
  Serious: Yes (Life-Threatening, Other)
  Sender: FDA-Public Use
  Company Number: FR-TEVA-366991ISR

PATIENT
  Age: 11 None
  Sex: Male

DRUGS (2)
  1. MODIODAL [Suspect]
     Indication: NARCOLEPSY
     Dosage: 200 MILLIGRAM DAILY;
     Route: 048
     Dates: start: 20121008
  2. MODIODAL [Suspect]
     Indication: CATAPLEXY
     Dosage: 300 MILLIGRAM DAILY; 200 MG IN THE MORNING AND 100 MG AT LUNCH
     Route: 048

REACTIONS (3)
  - Suicide attempt [Recovered/Resolved]
  - Headache [Unknown]
  - Agitation [Unknown]
